FAERS Safety Report 8144204-3 (Version None)
Quarter: 2012Q1

REPORT INFORMATION
  Report Type: 
  Country: None (occurrence: None)
  Receive Date: 20120217
  Receipt Date: 20120207
  Transmission Date: 20120608
  Serious: Yes (Hospitalization)
  Sender: FDA-Public Use
  Company Number: DE-MILLENNIUM PHARMACEUTICALS, INC.-2012-00957

PATIENT

DRUGS (1)
  1. VELCADE [Suspect]
     Indication: MULTIPLE MYELOMA
     Dosage: 2.8 MG, UNK
     Route: 042
     Dates: start: 20120123, end: 20120202

REACTIONS (3)
  - PAIN [None]
  - URINARY RETENTION [None]
  - BLOOD CREATININE INCREASED [None]
